FAERS Safety Report 20286393 (Version 1)
Quarter: 2022Q1

REPORT INFORMATION
  Report Type: Report from Study
  Country: HU (occurrence: HU)
  Receive Date: 20220103
  Receipt Date: 20220103
  Transmission Date: 20220423
  Serious: Yes (Hospitalization)
  Sender: FDA-Public Use
  Company Number: HU-AstraZeneca-2021A908329

PATIENT
  Age: 9 Month
  Sex: Female
  Weight: 6.4 kg

DRUGS (1)
  1. SYNAGIS [Suspect]
     Active Substance: PALIVIZUMAB
     Indication: Antiviral prophylaxis
     Dosage: MONTHLY ADMINISTRATION FOR 5 MONTHS
     Route: 030
     Dates: start: 202111

REACTIONS (3)
  - Bronchiolitis [Recovering/Resolving]
  - Pneumonia [Recovering/Resolving]
  - Viral infection [Recovering/Resolving]

NARRATIVE: CASE EVENT DATE: 20211219
